FAERS Safety Report 4894486-6 (Version None)
Quarter: 2006Q1

REPORT INFORMATION
  Report Type: 
  Country: None (occurrence: None)
  Receive Date: 20060127
  Receipt Date: 20060118
  Transmission Date: 20060701
  Serious: Yes (Hospitalization)
  Sender: FDA-Public Use
  Company Number: US-BRISTOL-MYERS SQUIBB COMPANY-13251392

PATIENT
  Age: 58 Year
  Sex: Female

DRUGS (9)
  1. NEFAZODONE HCL [Suspect]
     Indication: FIBROMYALGIA
     Dates: start: 19980101, end: 20030101
  2. ADVAIR DISKUS 100/50 [Suspect]
     Indication: ASTHMA
     Dosage: DOSING: 1 PUFF TWICE PER DAY/INHALED.
     Route: 055
     Dates: start: 20030423, end: 20030701
  3. PAXIL CR [Suspect]
     Indication: ANXIETY
     Route: 048
     Dates: start: 20030101
  4. SALBUTAMOL SULFATE [Concomitant]
  5. IPRATROPIUM BROMIDE [Concomitant]
  6. PREDNISONE [Concomitant]
  7. AMITRIPTYLINE HCL [Concomitant]
  8. ALBUTEROL SULFATE AUTOHALER [Concomitant]
  9. ATROVENT [Concomitant]

REACTIONS (13)
  - ANAEMIA [None]
  - CANDIDIASIS [None]
  - DIAPHRAGMATIC DISORDER [None]
  - DRUG INEFFECTIVE [None]
  - DYSPHONIA [None]
  - DYSPNOEA [None]
  - FUNGAL OESOPHAGITIS [None]
  - HAEMOPTYSIS [None]
  - OESOPHAGEAL DISORDER [None]
  - PULMONARY HAEMORRHAGE [None]
  - PULMONARY MASS [None]
  - PULMONARY MYCOSIS [None]
  - TREMOR [None]
